FAERS Safety Report 8738539 (Version 2)
Quarter: 2012Q4

REPORT INFORMATION
  Report Type: 
  Country: US (occurrence: US)
  Receive Date: 20120823
  Receipt Date: 20121221
  Transmission Date: 20130627
  Serious: Yes (Other)
  Sender: FDA-Public Use
  Company Number: PHHY2011US49403

PATIENT
  Sex: Male

DRUGS (8)
  1. GLEEVEC [Suspect]
     Indication: SOFT TISSUE NEOPLASM
     Dosage: 400 mg, daily
     Route: 048
     Dates: start: 20110601
  2. GLEEVEC [Suspect]
     Dosage: 300 mg, daily
     Route: 048
  3. GLEEVEC [Suspect]
     Dosage: 400 mg,daily
     Route: 048
     Dates: start: 20110611
  4. GLEEVEC [Suspect]
     Dosage: 200 mg/ 100 mg, daily
  5. GLEEVEC [Suspect]
     Dosage: 100mg daily (alternating with one 100mg daily)
     Route: 048
  6. PREDNISONE [Concomitant]
     Dosage: UNK UKN, UNK
  7. COUMADIN [Concomitant]
  8. INHALATION [Concomitant]

REACTIONS (21)
  - Deafness [Not Recovered/Not Resolved]
  - Middle ear effusion [Not Recovered/Not Resolved]
  - Ear infection [Unknown]
  - Gynaecomastia [Not Recovered/Not Resolved]
  - Trismus [Not Recovered/Not Resolved]
  - Muscular weakness [Unknown]
  - Dysstasia [Unknown]
  - Myalgia [Unknown]
  - Face oedema [Unknown]
  - Arthralgia [Recovering/Resolving]
  - Fluid retention [Not Recovered/Not Resolved]
  - Eye swelling [Not Recovered/Not Resolved]
  - Local swelling [Not Recovered/Not Resolved]
  - Muscle spasms [Not Recovered/Not Resolved]
  - Musculoskeletal discomfort [Not Recovered/Not Resolved]
  - Nipple pain [Unknown]
  - Joint swelling [Not Recovered/Not Resolved]
  - Swelling [Recovering/Resolving]
  - Musculoskeletal pain [Unknown]
  - Dry mouth [Unknown]
  - Lymphoedema [Recovering/Resolving]
